FAERS Safety Report 10920685 (Version 1)
Quarter: 2015Q1

REPORT INFORMATION
  Report Type: Spontaneous
  Country: US (occurrence: None)
  Receive Date: 20150313
  Receipt Date: 20150313
  Transmission Date: 20150721
  Serious: Yes (Life-Threatening, Hospitalization, Disabling)
  Sender: FDA-Public Use
  Company Number: None

PATIENT
  Age: 89 Year
  Sex: Female
  Weight: 75.75 kg

DRUGS (14)
  1. ATORVASTATIN [Concomitant]
     Active Substance: ATORVASTATIN
  2. AORTIC AND MITRAL VALVES (TISSUE) [Concomitant]
  3. RESPIMATE COMBIVENT [Concomitant]
  4. ADEMPAS [Suspect]
     Active Substance: RIOCIGUAT
     Indication: PULMONARY HYPERTENSION
     Dosage: 1 PILL THREE TIMES DAILY
     Route: 048
     Dates: start: 20141201, end: 20150302
  5. FUROSEMIDE. [Concomitant]
     Active Substance: FUROSEMIDE
  6. WARFARIN [Concomitant]
     Active Substance: WARFARIN
  7. POTCHLOR ER [Concomitant]
  8. STENTS [Concomitant]
  9. PACEMAKER [Concomitant]
  10. TRACLEER [Concomitant]
     Active Substance: BOSENTAN\BOSENTAN MONOHYDRATE
  11. IRON SUPPLEMENT FERROUS SULFATE [Concomitant]
  12. CLOPIDOGREL BUSULFATE [Concomitant]
  13. METOPROLOL TARTR [Concomitant]
  14. PREDNISONE. [Concomitant]
     Active Substance: PREDNISONE

REACTIONS (7)
  - Atrial fibrillation [None]
  - Joint swelling [None]
  - Fatigue [None]
  - Pallor [None]
  - Abdominal distension [None]
  - Dyspnoea [None]
  - Oxygen saturation decreased [None]

NARRATIVE: CASE EVENT DATE: 20141224
